FAERS Safety Report 15755629 (Version 1)
Quarter: 2018Q4

REPORT INFORMATION
  Report Type: Report from Study
  Country: FR (occurrence: FR)
  Receive Date: 20181224
  Receipt Date: 20181224
  Transmission Date: 20190205
  Serious: Yes (Other)
  Sender: FDA-Public Use
  Company Number: FR-ROCHE-2069601

PATIENT

DRUGS (2)
  1. BENDAMUSTINE [Suspect]
     Active Substance: BENDAMUSTINE
     Indication: WALDENSTROM^S MACROGLOBULINAEMIA
     Dosage: REPEATED EVERY 4 WEEKS, WITH A MAXIMUM OF 6 CYCLES.
     Route: 065
  2. RITUXIMAB. [Suspect]
     Active Substance: RITUXIMAB
     Indication: WALDENSTROM^S MACROGLOBULINAEMIA
     Dosage: REPEATED EVERY 4 WEEKS, WITH A MAXIMUM OF 6 CYCLES.
     Route: 042

REACTIONS (15)
  - Sepsis [Unknown]
  - Upper respiratory tract infection [Unknown]
  - Pancytopenia [Unknown]
  - Neutropenia [Unknown]
  - Sinusitis [Unknown]
  - Diverticulitis [Unknown]
  - Thrombocytopenia [Unknown]
  - Febrile neutropenia [Unknown]
  - Pneumonia [Unknown]
  - Skin infection [Unknown]
  - Oral herpes [Unknown]
  - Toxic skin eruption [Unknown]
  - Bronchopneumopathy [Unknown]
  - Herpes zoster [Unknown]
  - Anaemia [Unknown]
